FAERS Safety Report 9338756 (Version 3)
Quarter: 2013Q4

REPORT INFORMATION
  Report Type: Report from Study
  Country: CH (occurrence: CH)
  Receive Date: 20130610
  Receipt Date: 20131105
  Transmission Date: 20140711
  Serious: Yes (Hospitalization)
  Sender: FDA-Public Use
  Company Number: CH-BAYER-2013-070347

PATIENT
  Age: 68 Year
  Sex: Male
  Weight: 74 kg

DRUGS (8)
  1. ALPHARADIN [Suspect]
     Indication: PROSTATE CANCER
     Dosage: 4005 MBQ, SID
     Route: 042
     Dates: start: 20130326, end: 20130326
  2. ALPHARADIN [Suspect]
     Indication: PROSTATE CANCER
     Dosage: 4005 MBQ, SID
     Route: 042
     Dates: start: 20130423, end: 20130423
  3. ALPHARADIN [Suspect]
     Indication: PROSTATE CANCER
     Dosage: 4005 MBQ, SID
     Route: 042
     Dates: start: 20130521, end: 20130521
  4. MORPHINE [Concomitant]
     Indication: BONE PAIN
     Dosage: 40 MG, BID
     Route: 048
     Dates: start: 20130521
  5. MORPHINE [Concomitant]
     Indication: BONE PAIN
     Dosage: 10 GTT, PRN
     Route: 048
     Dates: start: 20130306
  6. BRUFEN [Concomitant]
     Indication: BONE PAIN
     Dosage: 600 MG, BID
     Route: 048
     Dates: start: 20130405
  7. NOVALGIN [Concomitant]
     Indication: BONE PAIN
     Dosage: 1 G, QID
     Route: 048
     Dates: start: 20130306
  8. FENTANYL [Concomitant]
     Indication: BONE PAIN
     Dosage: 200 MG, PRN
     Route: 048
     Dates: start: 20130521

REACTIONS (1)
  - Constipation [Recovered/Resolved]
